FAERS Safety Report 18296716 (Version 1)
Quarter: 2020Q3

REPORT INFORMATION
  Report Type: Spontaneous
  Country: DE (occurrence: DE)
  Receive Date: 20200922
  Receipt Date: 20200922
  Transmission Date: 20201103
  Serious: Yes (Hospitalization)
  Sender: FDA-Public Use
  Company Number: DE-PFIZER INC-2020362456

PATIENT
  Age: 54 Year
  Sex: Female
  Weight: 70 kg

DRUGS (3)
  1. ZOPICLON [Concomitant]
     Active Substance: ZOPICLONE
     Dosage: 0.5 DF, DAILY 7.5 MG, 0?0?0?0.5, TABLETS
     Route: 048
  2. PANTOPRAZOLE [Concomitant]
     Active Substance: PANTOPRAZOLE
     Dosage: 40 MG, 2X/DAY, 1?0?1?0, TABLETS
     Route: 048
  3. EPIRUBICIN HCL [Suspect]
     Active Substance: EPIRUBICIN HYDROCHLORIDE
     Dosage: UNK (MG)

REACTIONS (4)
  - Gamma-glutamyltransferase increased [Unknown]
  - Haematemesis [Recovering/Resolving]
  - Dyspepsia [Recovering/Resolving]
  - Blood potassium decreased [Unknown]

NARRATIVE: CASE EVENT DATE: 20200208
